FAERS Safety Report 7770013-0 (Version None)
Quarter: 2011Q3

REPORT INFORMATION
  Report Type: 
  Country: None (occurrence: None)
  Receive Date: 20110922
  Receipt Date: 20101015
  Transmission Date: 20111222
  Serious: No
  Sender: FDA-Public Use
  Company Number: US-ASTRAZENECA-2008UW05126

PATIENT
  Age: 47 Year
  Sex: Female
  Weight: 83.9 kg

DRUGS (42)
  1. SEROQUEL [Suspect]
     Indication: SLEEP DISORDER
     Route: 048
     Dates: start: 19980101
  2. ZOLOFT [Concomitant]
     Dates: start: 20000701
  3. TOPAMAX [Concomitant]
  4. HALDOL [Concomitant]
     Dates: start: 19800101
  5. SEROQUEL [Suspect]
     Dosage: 200-600 MG
     Route: 048
     Dates: start: 19980101
  6. SEROQUEL [Suspect]
     Route: 048
     Dates: start: 20041027, end: 20050412
  7. SEROQUEL [Suspect]
     Dosage: 200-600 MG
     Route: 048
     Dates: start: 19980101
  8. COZAAR [Concomitant]
  9. ZETIA [Concomitant]
  10. SEROQUEL [Suspect]
     Indication: INSOMNIA
     Route: 048
     Dates: start: 19980101
  11. SEROQUEL [Suspect]
     Dosage: 200-600 MG
     Route: 048
     Dates: start: 19980101
  12. SEROQUEL [Suspect]
     Route: 048
     Dates: start: 19980101, end: 20030101
  13. SEROQUEL [Suspect]
     Route: 048
     Dates: start: 19980101, end: 20030101
  14. SEROQUEL [Suspect]
     Route: 048
     Dates: start: 20041027, end: 20050412
  15. METFORMIN HCL [Concomitant]
  16. LORATADINE [Concomitant]
  17. LISINOPRIL [Concomitant]
  18. SEROQUEL [Suspect]
     Route: 048
     Dates: start: 20041027, end: 20050412
  19. GABAPENTIN [Concomitant]
  20. DEPAKOTE ER [Concomitant]
  21. KLONOPIN [Concomitant]
     Dates: end: 20061129
  22. TRAMADOL HCL [Concomitant]
  23. GABITRIL [Concomitant]
  24. SEROQUEL [Suspect]
     Indication: RESTLESSNESS
     Route: 048
     Dates: start: 19980101
  25. SEROQUEL [Suspect]
     Route: 048
     Dates: start: 19980101, end: 20030101
  26. SEROQUEL [Suspect]
     Route: 048
     Dates: start: 19980101, end: 20030101
  27. ZOCOR [Concomitant]
  28. ASPIRIN [Concomitant]
  29. FLUTICASONE PROPIONATE [Concomitant]
  30. SEROQUEL [Suspect]
     Indication: AFFECTIVE DISORDER
     Route: 048
     Dates: start: 19980101
  31. SEROQUEL [Suspect]
     Dosage: 200-600 MG
     Route: 048
     Dates: start: 19980101
  32. SEROQUEL [Suspect]
     Route: 048
     Dates: start: 19980101, end: 20030101
  33. TRAZODONE HYDROCHLORIDE [Concomitant]
  34. IMIPRAMINE [Concomitant]
     Dates: start: 20050427
  35. SEROQUEL [Suspect]
     Indication: BIPOLAR DISORDER
     Route: 048
     Dates: start: 19980101
  36. SEROQUEL [Suspect]
     Dosage: 200-600 MG
     Route: 048
     Dates: start: 19980101
  37. SEROQUEL [Suspect]
     Route: 048
     Dates: start: 20041027, end: 20050412
  38. SEROQUEL [Suspect]
     Route: 048
     Dates: start: 20041027, end: 20050412
  39. RANITIDINE [Concomitant]
  40. HYDROCODONE [Concomitant]
  41. LOVASTATIN [Concomitant]
  42. RISPERDAL [Concomitant]
     Indication: BIPOLAR DISORDER
     Dates: start: 19900101

REACTIONS (17)
  - ANXIETY [None]
  - HYPERTENSION [None]
  - ASTHENIA [None]
  - PANIC ATTACK [None]
  - MOOD SWINGS [None]
  - VOMITING [None]
  - PERSONALITY DISORDER [None]
  - BIPOLAR I DISORDER [None]
  - CONSTIPATION [None]
  - STRESS [None]
  - BLOOD CHOLESTEROL INCREASED [None]
  - TYPE 2 DIABETES MELLITUS [None]
  - BIPOLAR DISORDER [None]
  - LIMB INJURY [None]
  - NERVOUSNESS [None]
  - HYPERLIPIDAEMIA [None]
  - OBESITY [None]
